FAERS Safety Report 16118295 (Version 3)
Quarter: 2019Q2

REPORT INFORMATION
  Report Type: Spontaneous
  Country: US (occurrence: US)
  Receive Date: 20190326
  Receipt Date: 20190515
  Transmission Date: 20190711
  Serious: No
  Sender: FDA-Public Use
  Company Number: US-PFIZER INC-2019119563

PATIENT
  Sex: Male

DRUGS (1)
  1. LYRICA CR [Suspect]
     Active Substance: PREGABALIN
     Indication: NEURALGIA
     Dosage: UNK

REACTIONS (2)
  - Condition aggravated [Unknown]
  - Neuralgia [Unknown]
